FAERS Safety Report 8226816-1 (Version None)
Quarter: 2012Q1

REPORT INFORMATION
  Report Type: 
  Country: None (occurrence: None)
  Receive Date: 20120322
  Receipt Date: 20120316
  Transmission Date: 20120608
  Serious: Yes (Other)
  Sender: FDA-Public Use
  Company Number: US-SHIRE-ALL1-2012-01469

PATIENT
  Age: 8 Year
  Sex: Male

DRUGS (5)
  1. INTUNIV [Suspect]
     Dosage: 2 MG, 1X/DAY:QD
     Route: 048
  2. INTUNIV [Suspect]
     Dosage: 2 MG, 1X/DAY:QD (THREE DAYS A WEEK BY DAD)
     Route: 048
     Dates: end: 20120101
  3. INTUNIV [Suspect]
     Dosage: 1 MG, 1X/DAY:QD
     Route: 048
     Dates: start: 20110101
  4. INTUNIV [Suspect]
     Indication: ATTENTION DEFICIT/HYPERACTIVITY DISORDER
     Dosage: 1 MG, UNKNOWN (BY MOM, FOR FOUR DAYS OF THE WEEK)
     Route: 048
     Dates: end: 20120101
  5. INTUNIV [Suspect]
     Dosage: 1 MG, 1X/DAY:QD
     Route: 048

REACTIONS (3)
  - LOSS OF CONSCIOUSNESS [None]
  - HEPATIC ENZYME INCREASED [None]
  - INCORRECT DOSE ADMINISTERED [None]
